FAERS Safety Report 9298003 (Version 1)
Quarter: 2013Q2

REPORT INFORMATION
  Report Type: Spontaneous
  Country: GB (occurrence: GB)
  Receive Date: 20130520
  Receipt Date: 20130520
  Transmission Date: 20140414
  Serious: Yes (Other)
  Sender: FDA-Public Use
  Company Number: GB-JNJFOC-20130505659

PATIENT
  Age: 56 Year
  Sex: Male
  Weight: 105 kg

DRUGS (17)
  1. XARELTO [Suspect]
     Indication: CEREBROVASCULAR ACCIDENT PROPHYLAXIS
     Route: 048
     Dates: start: 20130221, end: 20130321
  2. XARELTO [Suspect]
     Indication: ATRIAL FIBRILLATION
     Route: 048
     Dates: start: 20130221, end: 20130321
  3. CARBOCISTEINE [Concomitant]
     Route: 065
  4. PARACETAMOL [Concomitant]
     Route: 065
  5. SIMVASTATIN [Concomitant]
     Route: 065
  6. HYDRALAZINE [Concomitant]
     Route: 065
  7. ISOSORBIDE [Concomitant]
     Route: 065
  8. MOVICOL [Concomitant]
     Route: 065
  9. RANITIDINE [Concomitant]
     Route: 065
  10. SENNA [Concomitant]
     Route: 065
  11. SERETIDE [Concomitant]
     Route: 065
  12. SPIRONOLACTONE [Concomitant]
     Route: 065
  13. HUMALOG [Concomitant]
     Route: 065
  14. DIGOXIN [Concomitant]
     Route: 065
  15. TIOTROPIUM [Concomitant]
     Route: 065
  16. BISOPROLOL [Concomitant]
     Route: 065
  17. BUMETANIDE [Concomitant]
     Route: 065

REACTIONS (4)
  - Decreased appetite [Recovered/Resolved]
  - Dysgeusia [Recovered/Resolved]
  - Tremor [Recovered/Resolved]
  - Nausea [Recovered/Resolved]
